FAERS Safety Report 10367658 (Version 1)
Quarter: 2014Q3

REPORT INFORMATION
  Report Type: Spontaneous
  Country: GB (occurrence: None)
  Receive Date: 20140805
  Receipt Date: 20140805
  Transmission Date: 20150326
  Serious: Yes (Other)
  Sender: FDA-Public Use
  Company Number: GB-H14001-14-00327

PATIENT
  Age: 60 Year
  Sex: Female

DRUGS (17)
  1. DILTIAZEM HYDROCHLORIDE (DILTIAZEM HYDROCHLORIDE (DILTIAZEM HYDROCHLORIDE) [Concomitant]
  2. RABEPRAZOLE (RABEPRAZOLE) (RABEPRAZOLE) [Concomitant]
  3. HYDROXYCHLOROQUINE SULFATE (HYDROXYCHLOROQUINE SULFATE) (HYDROXYCHLOROQUINE SULFATE) [Concomitant]
     Active Substance: HYDROXYCHLOROQUINE SULFATE
  4. DIHYDROCODEINE (DIHYDROCODEINE) (DIHYDROCODEINE) [Concomitant]
  5. GABAPENTINE (GABAPENTIN) (GABAPENTIN) [Concomitant]
  6. CHLORPHENAMINE (CHLORPHENAMINE) (CHLORPHENAMINE) [Concomitant]
  7. RAMIPRIL (RAMIPRIL) (RAMIPRIL) [Concomitant]
     Active Substance: RAMIPRIL
  8. AMOXICILLIN. [Concomitant]
     Active Substance: AMOXICILLIN
  9. ASPIRIN (ACETYLSALICYLIC ACID) (ACETYLSALICYLIC ACID) [Concomitant]
     Active Substance: ASPIRIN
  10. HYDROXOCOBALAMIN (HYDROXOCOBAOLAMIN) (HYDROXOCOBALAMIN) [Concomitant]
  11. LEVOTHYROXINE (LEVOTHYROXINE) (LEVOTHYROXINE) [Concomitant]
     Active Substance: LEVOTHYROXINE
  12. PHENYTOIN SODIUM (PHENYTOIN) (PHENYTOIN) [Suspect]
     Active Substance: PHENYTOIN SODIUM
     Indication: PRODUCT USED FOR UNKNOWN INDICATION
     Route: 041
     Dates: start: 20140714
  13. NYSTATIN (NYSTATIN) (NYSTATIN) [Concomitant]
  14. DULOXETINE (DULOXETINE) (DULOXETINE) [Concomitant]
     Active Substance: DULOXETINE
  15. GLYCERYL TRINITRATE (GLYCERYL TRINITRATE) (GLYCERYL TRINITRATE) [Concomitant]
  16. PARACETAMOL (PARACETAMOL) (PARACETAMOL) [Concomitant]
     Active Substance: ACETAMINOPHEN
  17. PREDNISOLONE (PREDNISOLONE) (PREDNISOLONE) [Concomitant]
     Active Substance: PREDNISOLONE

REACTIONS (4)
  - Blood pressure increased [None]
  - Hypersensitivity [None]
  - Lip swelling [None]
  - Swollen tongue [None]

NARRATIVE: CASE EVENT DATE: 20140714
